FAERS Safety Report 6742641-2 (Version None)
Quarter: 2010Q2

REPORT INFORMATION
  Report Type: 
  Country: None (occurrence: None)
  Receive Date: 20100524
  Receipt Date: 20100412
  Transmission Date: 20101027
  Serious: No
  Sender: FDA-Public Use
  Company Number: ACO_00686_2010

PATIENT
  Sex: Female
  Weight: 60.3284 kg

DRUGS (6)
  1. AMPYRA [Suspect]
     Indication: MULTIPLE SCLEROSIS
     Dosage: (10 MG BID ORAL)
     Route: 048
     Dates: start: 20100402
  2. REBIF [Concomitant]
  3. SANCTURA [Concomitant]
  4. ADDERALL XR 10 [Concomitant]
  5. DIAZEPAM [Concomitant]
  6. PREVACID [Concomitant]

REACTIONS (2)
  - CONDITION AGGRAVATED [None]
  - INSOMNIA [None]
